FAERS Safety Report 9203747 (Version 1)
Quarter: 2013Q1

REPORT INFORMATION
  Report Type: Spontaneous
  Country: US (occurrence: None)
  Receive Date: 20130329
  Receipt Date: 20130329
  Transmission Date: 20140127
  Serious: Yes (Hospitalization)
  Sender: FDA-Public Use
  Company Number: None

PATIENT
  Age: 78 Year
  Sex: Female

DRUGS (1)
  1. EXJADE 300 MG NOVARTIS [Suspect]
     Indication: IRON OVERLOAD
     Dosage: 1500 MG QD PO
     Route: 048
     Dates: start: 20121227, end: 20120321

REACTIONS (1)
  - Intestinal haemorrhage [None]
